FAERS Safety Report 6150569-4 (Version None)
Quarter: 2009Q2

REPORT INFORMATION
  Report Type: 
  Country: None (occurrence: None)
  Receive Date: 20090409
  Receipt Date: 20090409
  Transmission Date: 20091009
  Serious: Yes (Other)
  Sender: FDA-Public Use
  Company Number: US-PFIZER INC-2007070058

PATIENT
  Sex: Male
  Weight: 95.3 kg

DRUGS (1)
  1. CHANTIX [Suspect]
     Indication: SMOKING CESSATION THERAPY
     Dosage: 0.5MG
     Dates: start: 20070817

REACTIONS (5)
  - DYSGEUSIA [None]
  - INFECTION [None]
  - ORAL DISORDER [None]
  - STOMATITIS [None]
  - TOOTHACHE [None]
